FAERS Safety Report 7733824-3 (Version None)
Quarter: 2011Q3

REPORT INFORMATION
  Report Type: 
  Country: None (occurrence: None)
  Receive Date: 20110901
  Receipt Date: 20110822
  Transmission Date: 20111222
  Serious: Yes (Life-Threatening, Hospitalization)
  Sender: FDA-Public Use
  Company Number: 1000023168

PATIENT
  Age: 81 Year
  Sex: Male

DRUGS (5)
  1. NEBIVOLOL HCL [Suspect]
     Indication: SINUS RHYTHM
     Dosage: 2.5 MG (2.5 MG, 1 IN 1 D),ORAL
     Route: 048
     Dates: start: 20110411, end: 20110426
  2. NEBIVOLOL HCL [Suspect]
     Indication: BRADYCARDIA
     Dosage: 2.5 MG (2.5 MG, 1 IN 1 D),ORAL
     Route: 048
     Dates: start: 20110411, end: 20110426
  3. PREVISCAN (FLUINDIONE)(FLUINDIONE) [Concomitant]
  4. CORDARONE [Suspect]
     Indication: BRADYCARDIA
     Dosage: 200 MG (200 MG, 1 IN 1 D), ORAL
     Route: 048
     Dates: start: 20110311, end: 20110426
  5. CORDARONE [Suspect]
     Indication: SINUS RHYTHM
     Dosage: 200 MG (200 MG, 1 IN 1 D), ORAL
     Route: 048
     Dates: start: 20110311, end: 20110426

REACTIONS (4)
  - LOSS OF CONSCIOUSNESS [None]
  - MALAISE [None]
  - INTERNATIONAL NORMALISED RATIO INCREASED [None]
  - DRUG INTERACTION [None]
